FAERS Safety Report 5707701-3 (Version None)
Quarter: 2008Q2

REPORT INFORMATION
  Report Type: 
  Country: None (occurrence: None)
  Receive Date: 20080415
  Receipt Date: 20080407
  Transmission Date: 20081010
  Serious: Yes (Death)
  Sender: FDA-Public Use
  Company Number: 163-21880-08040579

PATIENT
  Age: 82 Year
  Sex: Female

DRUGS (2)
  1. REVLIMIDE (LENALIDOMIDE) (10 MILLIGRAM, CAPSULES) [Suspect]
     Indication: MALIGNANT LYMPHOID NEOPLASM
     Dosage: 10 MG, 1 IN 1 D, ORAL
     Route: 048
     Dates: start: 20080318, end: 20080301
  2. REVLIMIDE (LENALIDOMIDE) (10 MILLIGRAM, CAPSULES) [Suspect]
     Indication: MULTIPLE MYELOMA
     Dosage: 10 MG, 1 IN 1 D, ORAL
     Route: 048
     Dates: start: 20080318, end: 20080301

REACTIONS (1)
  - DEATH [None]
